FAERS Safety Report 19491132 (Version 2)
Quarter: 2021Q3

REPORT INFORMATION
  Report Type: Spontaneous
  Country: FR (occurrence: FR)
  Receive Date: 20210705
  Receipt Date: 20210825
  Transmission Date: 20211014
  Serious: Yes (Life-Threatening, Hospitalization, Other)
  Sender: FDA-Public Use
  Company Number: FR-EPICPHARMA-FR-2021EPCLIT00699

PATIENT
  Age: 19 Year
  Sex: Male

DRUGS (14)
  1. MIDAZOLAM. [Interacting]
     Active Substance: MIDAZOLAM
     Indication: SEDATION
     Route: 065
  2. EPINEPHRINE. [Interacting]
     Active Substance: EPINEPHRINE
     Indication: CARDIAC ARREST
     Route: 040
  3. ATROPINE. [Interacting]
     Active Substance: ATROPINE
     Indication: CARDIOGENIC SHOCK
  4. ATROPINE. [Interacting]
     Active Substance: ATROPINE
     Indication: STRESS CARDIOMYOPATHY
  5. EPINEPHRINE. [Interacting]
     Active Substance: EPINEPHRINE
     Indication: PULMONARY ARTERIAL PRESSURE ABNORMAL
  6. DEXTROAMPHET SACCHARAT, AMPHET ASPARTATE, DEXTROAMPHET SULFATE AND AMPHET SULFAT [Suspect]
     Active Substance: AMPHETAMINE ASPARTATE\AMPHETAMINE SULFATE\DEXTROAMPHETAMINE SACCHARATE\DEXTROAMPHETAMINE SULFATE
     Indication: PRODUCT USED FOR UNKNOWN INDICATION
     Route: 065
  7. AMIODARONE [Interacting]
     Active Substance: AMIODARONE
     Route: 065
  8. ATROPINE. [Interacting]
     Active Substance: ATROPINE
     Indication: CARDIAC ARREST
     Route: 065
  9. SUFENTANIL [Interacting]
     Active Substance: SUFENTANIL
     Indication: SEDATION
     Route: 065
  10. NOREPINEPHRINE. [Interacting]
     Active Substance: NOREPINEPHRINE
     Route: 065
  11. EPINEPHRINE. [Interacting]
     Active Substance: EPINEPHRINE
     Indication: CARDIOGENIC SHOCK
     Dosage: PER HOUR
     Route: 065
  12. EPINEPHRINE. [Interacting]
     Active Substance: EPINEPHRINE
     Indication: STRESS CARDIOMYOPATHY
  13. AMIODARONE [Interacting]
     Active Substance: AMIODARONE
     Route: 065
  14. NALOXONE [Interacting]
     Active Substance: NALOXONE
     Indication: TOXICITY TO VARIOUS AGENTS
     Route: 065

REACTIONS (3)
  - Cardiac arrest [Recovered/Resolved]
  - Stress cardiomyopathy [Recovered/Resolved]
  - Cardiogenic shock [Recovered/Resolved]
